FAERS Safety Report 5705878-7 (Version None)
Quarter: 2008Q2

REPORT INFORMATION
  Report Type: 
  Country: None (occurrence: None)
  Receive Date: 20080415
  Receipt Date: 20080408
  Transmission Date: 20081010
  Serious: Yes (Hospitalization)
  Sender: FDA-Public Use
  Company Number: US-BAYER-200811230BCC

PATIENT
  Age: 84 Year
  Sex: Female
  Weight: 73 kg

DRUGS (9)
  1. ASPIRIN [Suspect]
     Indication: PROPHYLAXIS
     Dosage: TOTAL DAILY DOSE: 81 MG  UNIT DOSE: 81 MG
     Route: 048
     Dates: start: 20071129, end: 20071204
  2. BLINDED EPTIFIBATIDE S-P [Suspect]
     Indication: ACUTE CORONARY SYNDROME
     Route: 065
  3. PLAVIX [Suspect]
     Indication: PROPHYLAXIS
     Dosage: TOTAL DAILY DOSE: 75 MG  UNIT DOSE: 75 MG
     Route: 048
     Dates: start: 20071129, end: 20071204
  4. CRESTOR [Concomitant]
     Dates: start: 20071129
  5. KEPPRA [Concomitant]
     Dates: start: 20071129
  6. LISINOPRIL [Concomitant]
     Dates: start: 20071129
  7. LASIX [Concomitant]
     Dates: start: 20071129
  8. LOPRESSOR [Concomitant]
     Dates: start: 20071001
  9. PROCARDIA XL [Concomitant]
     Dates: start: 20071128

REACTIONS (1)
  - RECTAL HAEMORRHAGE [None]
